FAERS Safety Report 10522476 (Version 1)
Quarter: 2014Q4

REPORT INFORMATION
  Report Type: Spontaneous
  Country: RU (occurrence: RU)
  Receive Date: 20141016
  Receipt Date: 20141016
  Transmission Date: 20150528
  Serious: Yes (Hospitalization, Other)
  Sender: FDA-Public Use
  Company Number: RU-WATSON-2014-22023

PATIENT
  Sex: Female

DRUGS (1)
  1. FUROSEMIDE (UNKNOWN) [Suspect]
     Active Substance: FUROSEMIDE
     Indication: PRODUCT USED FOR UNKNOWN INDICATION
     Dosage: UNK
     Route: 065

REACTIONS (7)
  - Chronic kidney disease [Not Recovered/Not Resolved]
  - Seizure [Unknown]
  - Gout [Unknown]
  - Osteoporosis [Unknown]
  - Hyperparathyroidism secondary [Unknown]
  - Anorexia nervosa [Unknown]
  - Cachexia [Unknown]

NARRATIVE: CASE EVENT DATE: 20120505
